FAERS Safety Report 18170476 (Version 2)
Quarter: 2021Q1

REPORT INFORMATION
  Report Type: Spontaneous
  Country: US (occurrence: US)
  Receive Date: 20200819
  Receipt Date: 20210301
  Transmission Date: 20210419
  Serious: Yes (Other)
  Sender: FDA-Public Use
  Company Number: US-PFIZER INC-2020317504

PATIENT
  Age: 60 Year

DRUGS (1)
  1. DILANTIN [Suspect]
     Active Substance: PHENYTOIN
     Indication: EPILEPSY
     Dosage: 4 DF, DAILY

REACTIONS (6)
  - Peripheral vascular disorder [Unknown]
  - Coronary artery occlusion [Unknown]
  - Disease recurrence [Unknown]
  - Cardiac failure [Unknown]
  - Infection [Unknown]
  - Thyroid disorder [Unknown]
